FAERS Safety Report 18546360 (Version 3)
Quarter: 2020Q4

REPORT INFORMATION
  Report Type: Report from Study
  Country: US (occurrence: US)
  Receive Date: 20201125
  Receipt Date: 20201223
  Transmission Date: 20210114
  Serious: Yes (Hospitalization)
  Sender: FDA-Public Use
  Company Number: US-EISAI MEDICAL RESEARCH-EC-2020-084326

PATIENT
  Age: 77 Year
  Sex: Male

DRUGS (3)
  1. LENVIMA [Suspect]
     Active Substance: LENVATINIB
     Route: 048
     Dates: start: 20201207
  2. AFINITOR [Concomitant]
     Active Substance: EVEROLIMUS
  3. LENVIMA [Suspect]
     Active Substance: LENVATINIB
     Indication: RENAL CANCER
     Route: 048
     Dates: start: 20201112, end: 20201116

REACTIONS (13)
  - Vomiting [Unknown]
  - Acute kidney injury [Unknown]
  - Blood potassium decreased [Unknown]
  - Feeling abnormal [Unknown]
  - Hyponatraemia [Unknown]
  - Peripheral swelling [Unknown]
  - Cough [Unknown]
  - Dysphagia [Not Recovered/Not Resolved]
  - Diarrhoea [Unknown]
  - Dysphonia [Not Recovered/Not Resolved]
  - Dehydration [Unknown]
  - Disorientation [Unknown]
  - Asthenia [Not Recovered/Not Resolved]

NARRATIVE: CASE EVENT DATE: 20201112
